FAERS Safety Report 6810662-7 (Version None)
Quarter: 2010Q2

REPORT INFORMATION
  Report Type: 
  Country: None (occurrence: None)
  Receive Date: 20100630
  Receipt Date: 20060731
  Transmission Date: 20101027
  Serious: No
  Sender: FDA-Public Use
  Company Number: US-PFIZER INC-2007059853

PATIENT
  Sex: Female

DRUGS (2)
  1. MICRONASE TAB [Suspect]
  2. DRUG, UNSPECIFIED [Concomitant]

REACTIONS (1)
  - UNEVALUABLE EVENT [None]
